FAERS Safety Report 4639957-2 (Version None)
Quarter: 2005Q2

REPORT INFORMATION
  Report Type: 
  Country: None (occurrence: None)
  Receive Date: 20050420
  Receipt Date: 20040427
  Transmission Date: 20051028
  Serious: Yes (Hospitalization)
  Sender: FDA-Public Use
  Company Number: JP-SP-2004-01784

PATIENT
  Age: 72 Year
  Sex: Male

DRUGS (8)
  1. IMMUCYST [Suspect]
     Indication: BLADDER CANCER
     Route: 043
     Dates: start: 20040224, end: 20040413
  2. IMMUCYST [Suspect]
     Route: 043
     Dates: start: 20040224, end: 20040413
  3. ALLOPURINOL [Concomitant]
     Indication: HYPERURICAEMIA
     Dosage: 100 MG/DAY
     Route: 048
  4. FENOFIBRATE [Concomitant]
     Indication: HYPERURICAEMIA
     Dosage: 300 MG/DAY
     Route: 048
  5. ZOLPIDEM TARTRATE [Concomitant]
     Indication: INSOMNIA
     Route: 048
     Dates: start: 20040310, end: 20040420
  6. PROPIVERINE HYDROCHLORIDE [Concomitant]
     Route: 048
     Dates: start: 20040306, end: 20040420
  7. LOXOPROFEN SODIUM [Concomitant]
     Indication: DYSURIA
     Route: 048
     Dates: start: 20040306, end: 20040420
  8. TEPRENONE [Concomitant]
     Indication: INSOMNIA
     Route: 048
     Dates: start: 20040306, end: 20040420

REACTIONS (15)
  - BLADDER CONSTRICTION [None]
  - BLADDER HYPERTROPHY [None]
  - BLOOD POTASSIUM INCREASED [None]
  - DYSURIA [None]
  - HAEMATURIA [None]
  - INSOMNIA [None]
  - NUCLEAR MAGNETIC RESONANCE IMAGING ABNORMAL [None]
  - POLLAKIURIA [None]
  - PYREXIA [None]
  - PYURIA [None]
  - RENAL FAILURE [None]
  - RESIDUAL URINE VOLUME [None]
  - TUBERCULOSIS OF GENITOURINARY SYSTEM [None]
  - URINARY TRACT DISORDER [None]
  - VESICOURETERIC REFLUX [None]
